FAERS Safety Report 11835441 (Version 2)
Quarter: 2017Q2

REPORT INFORMATION
  Report Type: Spontaneous
  Country: CN (occurrence: CN)
  Receive Date: 20151215
  Receipt Date: 20170415
  Transmission Date: 20170829
  Serious: Yes (Hospitalization, Other)
  Sender: FDA-Public Use
  Company Number: CN-SUN PHARMACEUTICAL INDUSTRIES LTD-2015R1-107761

PATIENT
  Age: 43 Year
  Sex: Female

DRUGS (1)
  1. PROPYLTHIOURACIL. [Suspect]
     Active Substance: PROPYLTHIOURACIL
     Indication: HYPERTHYROIDISM
     Dosage: 50 MG, TID
     Route: 065
     Dates: start: 2013, end: 2013

REACTIONS (4)
  - Osteonecrosis [Recovered/Resolved]
  - Agranulocytosis [Recovered/Resolved]
  - Stomatitis [Recovered/Resolved]
  - Gingivitis ulcerative [Recovered/Resolved]

NARRATIVE: CASE EVENT DATE: 2013
